FAERS Safety Report 19706900 (Version 1)
Quarter: 2021Q3

REPORT INFORMATION
  Report Type: Spontaneous
  Country: US (occurrence: US)
  Receive Date: 20210816
  Receipt Date: 20210816
  Transmission Date: 20211014
  Serious: No
  Sender: FDA-Public Use
  Company Number: None

PATIENT
  Age: 67 Year
  Sex: Male
  Weight: 92 kg

DRUGS (1)
  1. LORAZEPAM (LORAZEPAM 0.5MG TAB) [Suspect]
     Active Substance: LORAZEPAM
     Indication: PANIC DISORDER
     Route: 048
     Dates: start: 20210609, end: 20210812

REACTIONS (3)
  - Panic attack [None]
  - Delirium [None]
  - Therapy interrupted [None]

NARRATIVE: CASE EVENT DATE: 20210719
